FAERS Safety Report 4289918-0 (Version None)
Quarter: 2004Q1

REPORT INFORMATION
  Report Type: 
  Country: None (occurrence: None)
  Receive Date: 20040209
  Receipt Date: 20040128
  Transmission Date: 20041129
  Serious: Yes (Hospitalization)
  Sender: FDA-Public Use
  Company Number: 200410389FR

PATIENT
  Age: 59 Year
  Sex: Female

DRUGS (2)
  1. TAXOTERE [Suspect]
     Indication: BREAST CANCER
     Route: 042
     Dates: start: 20020805, end: 20020805
  2. EPIRUBICIN [Suspect]
     Indication: BREAST CANCER
     Route: 042
     Dates: start: 20020805, end: 20020805

REACTIONS (8)
  - ANURIA [None]
  - CAPILLARY LEAK SYNDROME [None]
  - CLOSTRIDIUM COLITIS [None]
  - DIARRHOEA [None]
  - FEBRILE NEUTROPENIA [None]
  - HYPOVOLAEMIC SHOCK [None]
  - RENAL FAILURE ACUTE [None]
  - SEPTIC SHOCK [None]
